FAERS Safety Report 9731230 (Version 1)
Quarter: 2013Q4

REPORT INFORMATION
  Report Type: Spontaneous
  Country: FR (occurrence: FR)
  Receive Date: 20131205
  Receipt Date: 20131205
  Transmission Date: 20140711
  Serious: Yes (Other)
  Sender: FDA-Public Use
  Company Number: FR-ROCHE-1313327

PATIENT
  Age: 55 Year
  Sex: Female

DRUGS (4)
  1. HERCEPTIN [Suspect]
     Indication: BREAST CANCER METASTATIC
     Dosage: TREATMENT DURATION= 5 YEARS
     Route: 042
     Dates: start: 20081222, end: 20130722
  2. NAVELBINE [Suspect]
     Indication: BREAST CANCER METASTATIC
     Dosage: CUMULATED DOSES TAKEN WAS 1428MG
     Route: 042
     Dates: start: 20120712, end: 20130812
  3. DOCETAXEL [Concomitant]
  4. CARBOPLATIN [Concomitant]

REACTIONS (1)
  - Microangiopathy [Not Recovered/Not Resolved]
